FAERS Safety Report 8371916-9 (Version None)
Quarter: 2012Q2

REPORT INFORMATION
  Report Type: 
  Country: None (occurrence: None)
  Receive Date: 20120518
  Receipt Date: 20120508
  Transmission Date: 20120825
  Serious: Yes (Death, Life-Threatening, Other)
  Sender: FDA-Public Use
  Company Number: US-BAXTER-2012BAX003916

PATIENT
  Sex: Female

DRUGS (3)
  1. DIANEAL [Suspect]
     Indication: PERITONEAL DIALYSIS
     Route: 033
     Dates: end: 20120426
  2. CYCLOSPORINE [Suspect]
  3. DIANEAL [Suspect]
     Route: 033
     Dates: end: 20120426

REACTIONS (3)
  - RENAL FAILURE [None]
  - TOXICITY TO VARIOUS AGENTS [None]
  - DYSPNOEA [None]
